FAERS Safety Report 9482216 (Version 1)
Quarter: 2013Q3

REPORT INFORMATION
  Report Type: Spontaneous
  Country: US (occurrence: US)
  Receive Date: 20130828
  Receipt Date: 20130828
  Transmission Date: 20140515
  Serious: No
  Sender: FDA-Public Use
  Company Number: US-BAYER-2013-103761

PATIENT
  Age: 66 Year
  Sex: Male
  Weight: 93 kg

DRUGS (8)
  1. ALEVE CAPLET [Suspect]
     Indication: MYALGIA
     Dosage: 2 DF, QD
     Route: 048
  2. VITAMIN C [Concomitant]
  3. DIOVAN [Concomitant]
  4. COUMADIN [Concomitant]
  5. OMEPRAZOLE [Concomitant]
  6. KOMBIGLYZE [Concomitant]
  7. MINOCYCLINE [Concomitant]
  8. CAMPRAL [Concomitant]

REACTIONS (1)
  - Incorrect drug administration duration [None]
